FAERS Safety Report 22629495 (Version 3)
Quarter: 2024Q1

REPORT INFORMATION
  Report Type: Report from Study
  Country: US (occurrence: US)
  Receive Date: 20230622
  Receipt Date: 20240209
  Transmission Date: 20240410
  Serious: Yes (Other)
  Sender: FDA-Public Use
  Company Number: US-ETON PHARMACEUTICALS, INC-2023ETO000123

PATIENT

DRUGS (3)
  1. ALKINDI SPRINKLE [Suspect]
     Active Substance: HYDROCORTISONE
     Indication: Adrenal insufficiency
     Dosage: 0.5 MILLIGRAM, TID
     Route: 048
     Dates: start: 20230602
  2. INFANTS TYLENOL [Concomitant]
     Active Substance: ACETAMINOPHEN
     Indication: Product used for unknown indication
     Dosage: UNK
  3. MINERALS\VITAMINS [Concomitant]
     Active Substance: MINERALS\VITAMINS
     Indication: Product used for unknown indication
     Dosage: UNK

REACTIONS (3)
  - Choking [Unknown]
  - Incorrect dose administered [Unknown]
  - Product use complaint [Unknown]
